FAERS Safety Report 25878532 (Version 1)
Quarter: 2025Q4

REPORT INFORMATION
  Report Type: Spontaneous
  Country: US (occurrence: US)
  Receive Date: 20251003
  Receipt Date: 20251003
  Transmission Date: 20260118
  Serious: Yes (Death, Other)
  Sender: Kenvue
  Company Number: US-KENVUE-20250912476

PATIENT
  Sex: Female

DRUGS (2)
  1. TYLENOL EXTRA STRENGTH [Suspect]
     Active Substance: ACETAMINOPHEN
     Indication: Headache
     Dosage: 1 OR 2 TABLETS ONCE OR TWICE
     Route: 065
     Dates: start: 2024
  2. TYLENOL PM [Suspect]
     Active Substance: ACETAMINOPHEN\DIPHENHYDRAMINE
     Indication: Headache
     Dosage: 1 OR 2 , ONCE A DAY
     Route: 065
     Dates: start: 2024

REACTIONS (3)
  - Acute hepatic failure [Fatal]
  - Incorrect dose administered [Fatal]
  - Inappropriate schedule of product administration [Fatal]

NARRATIVE: CASE EVENT DATE: 20240101
